FAERS Safety Report 5045876-2 (Version None)
Quarter: 2006Q2

REPORT INFORMATION
  Report Type: 
  Country: None (occurrence: None)
  Receive Date: 20060601
  Receipt Date: 20060424
  Transmission Date: 20061013
  Serious: No
  Sender: FDA-Public Use
  Company Number: 2006-BP-04331BP

PATIENT
  Age: 83 Year
  Sex: Male

DRUGS (4)
  1. SPIRIVA [Suspect]
     Indication: CHRONIC OBSTRUCTIVE PULMONARY DISEASE
     Dosage: SEE IMAGE
     Route: 055
     Dates: start: 20060101, end: 20060101
  2. SPIRIVA [Suspect]
     Indication: CHRONIC OBSTRUCTIVE PULMONARY DISEASE
     Dosage: SEE IMAGE
     Route: 055
     Dates: start: 20060406
  3. ALBUTEROL SPIROS [Concomitant]
  4. NAS0NEX [Concomitant]

REACTIONS (1)
  - DRUG INEFFECTIVE [None]
